FAERS Safety Report 24458697 (Version 3)
Quarter: 2024Q4

REPORT INFORMATION
  Report Type: Report from Study
  Country: AT (occurrence: AT)
  Receive Date: 20241018
  Receipt Date: 20241231
  Transmission Date: 20250115
  Serious: No
  Sender: ABBVIE
  Company Number: AT-ABBVIE-5961651

PATIENT
  Age: 31 Year
  Sex: Female

DRUGS (3)
  1. HUMIRA [Suspect]
     Active Substance: ADALIMUMAB
     Indication: Colitis ulcerative
     Route: 058
     Dates: start: 202403, end: 202408
  2. HUMIRA [Suspect]
     Active Substance: ADALIMUMAB
     Route: 058
     Dates: start: 202409
  3. URSODIOL [Concomitant]
     Active Substance: URSODIOL
     Indication: Cholestasis

REACTIONS (5)
  - Maternal exposure during pregnancy [Unknown]
  - Live birth [Unknown]
  - Pruritus [Unknown]
  - Cholestasis [Unknown]
  - Back pain [Unknown]

NARRATIVE: CASE EVENT DATE: 20240101
